FAERS Safety Report 8933182 (Version 1)
Quarter: 2012Q4

REPORT INFORMATION
  Report Type: 
  Country: US (occurrence: US)
  Receive Date: 20121128
  Receipt Date: 20121128
  Transmission Date: 20130627
  Serious: Yes (Life-Threatening)
  Sender: FDA-Public Use
  Company Number: CHPA2012US023670

PATIENT
  Age: 74 Year
  Sex: Female

DRUGS (1)
  1. EXCEDRIN MIGRAINE [Suspect]
     Indication: MIGRAINE
     Dosage: Unk, Unk
     Route: 048

REACTIONS (2)
  - Feeling abnormal [Unknown]
  - Disease recurrence [Not Recovered/Not Resolved]
